APPROVED DRUG PRODUCT: XYLOCAINE
Active Ingredient: LIDOCAINE
Strength: 100MG
Dosage Form/Route: SUPPOSITORY;RECTAL
Application: N013077 | Product #001
Applicant: ASTRAZENECA LP
Approved: Approved Prior to Jan 1, 1982 | RLD: No | RS: No | Type: DISCN